FAERS Safety Report 4300698-2 (Version None)
Quarter: 2004Q1

REPORT INFORMATION
  Report Type: 
  Country: None (occurrence: None)
  Receive Date: 20040219
  Receipt Date: 20040219
  Transmission Date: 20041129
  Serious: Yes (Life-Threatening, Hospitalization)
  Sender: FDA-Public Use
  Company Number: None

PATIENT
  Age: 81 Year
  Sex: Male
  Weight: 108 kg

DRUGS (8)
  1. GEMFIBROZIL [Suspect]
     Indication: HYPERCHOLESTEROLAEMIA
     Dosage: 600 MG BID PO
     Route: 048
     Dates: start: 20031016, end: 20040121
  2. SIMVASTATIN [Suspect]
     Indication: HYPERCHOLESTEROLAEMIA
     Dosage: 40 MG PO QD
     Route: 048
     Dates: start: 20031208, end: 20040121
  3. DOXAZOSIN MESYLATE [Concomitant]
  4. DILTIAZEM (TIAZAC) [Concomitant]
  5. ROSIGLITAZONE MALEATE [Concomitant]
  6. GLYBURIDE [Concomitant]
  7. FUROSEMIDE [Concomitant]
  8. ENALAPRIL MALEATE [Concomitant]

REACTIONS (1)
  - RHABDOMYOLYSIS [None]
